FAERS Safety Report 5831557-1 (Version None)
Quarter: 2008Q3

REPORT INFORMATION
  Report Type: 
  Country: None (occurrence: None)
  Receive Date: 20080801
  Receipt Date: 20080326
  Transmission Date: 20090109
  Serious: Yes (Hospitalization)
  Sender: FDA-Public Use
  Company Number: AU-GENENTECH-241469

PATIENT
  Sex: Male

DRUGS (3)
  1. BEVACIZUMAB [Suspect]
     Indication: COLORECTAL CANCER METASTATIC
     Dosage: 560 MG, Q3W
     Route: 042
     Dates: start: 20051130
  2. CAPECITABINE [Suspect]
     Indication: COLORECTAL CANCER METASTATIC
     Dosage: 2500 MG/M2, QD
     Route: 048
     Dates: start: 20051130
  3. MITOMYCIN [Suspect]
     Indication: COLORECTAL CANCER METASTATIC
     Dosage: 13 MG, Q6W
     Route: 042
     Dates: start: 20051130

REACTIONS (1)
  - HAEMOLYTIC URAEMIC SYNDROME [None]
